FAERS Safety Report 8616718-0 (Version None)
Quarter: 2012Q3

REPORT INFORMATION
  Report Type: 
  Country: None (occurrence: None)
  Receive Date: 20120823
  Receipt Date: 20120802
  Transmission Date: 20120928
  Serious: No
  Sender: FDA-Public Use
  Company Number: US-009507513-1208USA002349

PATIENT

DRUGS (1)
  1. NUVARING [Suspect]
     Dosage: 1 RING FOR 3 WEEKS
     Route: 067
     Dates: start: 20120722

REACTIONS (1)
  - DEVICE EXPULSION [None]
